FAERS Safety Report 23541496 (Version 1)
Quarter: 2024Q1

REPORT INFORMATION
  Report Type: Spontaneous
  Country: GB (occurrence: GB)
  Receive Date: 20240219
  Receipt Date: 20240219
  Transmission Date: 20240409
  Serious: Yes (Hospitalization, Other)
  Sender: FDA-Public Use
  Company Number: GB-SUN PHARMACEUTICAL INDUSTRIES LTD-2024R1-431829

PATIENT
  Age: 40 Year
  Sex: Male

DRUGS (1)
  1. CLOZAPINE [Suspect]
     Active Substance: CLOZAPINE
     Indication: Schizophrenia
     Dosage: 325 MILLIGRAM
     Route: 065

REACTIONS (6)
  - Treatment noncompliance [Unknown]
  - Therapeutic response decreased [Unknown]
  - Constipation [Unknown]
  - Weight gain poor [Unknown]
  - Salivary hypersecretion [Unknown]
  - Tachycardia [Unknown]
